FAERS Safety Report 16390932 (Version 2)
Quarter: 2020Q1

REPORT INFORMATION
  Report Type: Spontaneous
  Country: FR (occurrence: FR)
  Receive Date: 20190604
  Receipt Date: 20200311
  Transmission Date: 20200409
  Serious: Yes (Hospitalization, Other)
  Sender: FDA-Public Use
  Company Number: FR-BRISTOL-MYERS SQUIBB COMPANY-BMS-2019-052584

PATIENT
  Age: 72 Year
  Sex: Male
  Weight: 70 kg

DRUGS (2)
  1. METFORMIN HYDROCHLORIDE. [Suspect]
     Active Substance: METFORMIN HYDROCHLORIDE
     Indication: PRODUCT USED FOR UNKNOWN INDICATION
     Dosage: 1 GRAM DAILY
     Route: 065
  2. REGORAFENIB. [Suspect]
     Active Substance: REGORAFENIB
     Indication: PRODUCT USED FOR UNKNOWN INDICATION
     Dosage: UNK
     Route: 065
     Dates: end: 20190119

REACTIONS (1)
  - Acute kidney injury [Recovering/Resolving]

NARRATIVE: CASE EVENT DATE: 20190119
